FAERS Safety Report 4951935-2 (Version None)
Quarter: 2006Q1

REPORT INFORMATION
  Report Type: 
  Country: None (occurrence: None)
  Receive Date: 20060322
  Receipt Date: 20060322
  Transmission Date: 20060701
  Serious: Yes (Other)
  Sender: FDA-Public Use
  Company Number: None

PATIENT
  Age: 36 Year
  Sex: Male
  Weight: 59.7 kg

DRUGS (9)
  1. ISOVUE-300 [Suspect]
     Indication: COMPUTERISED TOMOGRAM
     Dosage: 130 ML IV 3ML/SEC X1 DOSE
     Route: 042
  2. ALEMTUZUMAB [Concomitant]
  3. OMEPRAZOLE [Concomitant]
  4. LEVOFLOXACIN [Concomitant]
  5. VALACYCLOVIR [Concomitant]
  6. LEVETIRACETAM [Concomitant]
  7. ACETAMINOPHEN [Concomitant]
  8. MAGNESIUM OXIDE [Concomitant]
  9. DIPHENHYDRAMINE [Concomitant]

REACTIONS (8)
  - BLOOD PRESSURE INCREASED [None]
  - DIZZINESS POSTURAL [None]
  - EAR DISORDER [None]
  - ORAL PRURITUS [None]
  - PRURITUS [None]
  - RESPIRATORY RATE INCREASED [None]
  - THROAT IRRITATION [None]
  - THROAT TIGHTNESS [None]
